FAERS Safety Report 10770255 (Version 5)
Quarter: 2015Q4

REPORT INFORMATION
  Report Type: Spontaneous
  Country: US (occurrence: US)
  Receive Date: 20150206
  Receipt Date: 20151008
  Transmission Date: 20160304
  Serious: Yes (Life-Threatening, Other)
  Sender: FDA-Public Use
  Company Number: US-BAYER-2015-017726

PATIENT
  Age: 32 Year
  Sex: Female
  Weight: 54.42 kg

DRUGS (6)
  1. REPLENS [Concomitant]
     Active Substance: CARBOMER 934\GLYCERIN\METHYLPARABEN\PROPYLPARABEN\SODIUM HYDROXIDE
     Dosage: UNK
     Dates: start: 20140725
  2. VYVANSE [Concomitant]
     Active Substance: LISDEXAMFETAMINE DIMESYLATE
     Dosage: 30 MG, UNK
     Dates: start: 20140725
  3. MIRENA [Suspect]
     Active Substance: LEVONORGESTREL
     Indication: CONTRACEPTION
     Dosage: 20 MCG/24HR, CONT
     Route: 015
     Dates: start: 201209, end: 20140925
  4. LAMICTAL [Concomitant]
     Active Substance: LAMOTRIGINE
     Dosage: UNK
     Dates: start: 20140725
  5. CIPRO [Concomitant]
     Active Substance: CIPROFLOXACIN HYDROCHLORIDE
  6. LEXAPRO [Concomitant]
     Active Substance: ESCITALOPRAM OXALATE

REACTIONS (13)
  - Anhedonia [Not Recovered/Not Resolved]
  - Uterine perforation [None]
  - Post procedural discomfort [Not Recovered/Not Resolved]
  - Abdominal pain lower [None]
  - Frustration [Not Recovered/Not Resolved]
  - Medical device pain [None]
  - Procedural pain [Not Recovered/Not Resolved]
  - Genital haemorrhage [None]
  - Injury [None]
  - Emotional distress [Not Recovered/Not Resolved]
  - General physical health deterioration [None]
  - Anxiety [Not Recovered/Not Resolved]
  - Medical device discomfort [None]

NARRATIVE: CASE EVENT DATE: 201409
